FAERS Safety Report 10244789 (Version 1)
Quarter: 2014Q2

REPORT INFORMATION
  Report Type: Spontaneous
  Country: US (occurrence: US)
  Receive Date: 20140618
  Receipt Date: 20140618
  Transmission Date: 20141212
  Serious: Yes (Hospitalization, Other)
  Sender: FDA-Public Use
  Company Number: US-ELI_LILLY_AND_COMPANY-US201406003360

PATIENT
  Age: 41 Year
  Sex: Female
  Weight: 47.62 kg

DRUGS (1)
  1. HUMALOG LISPRO [Suspect]
     Indication: PRODUCT USED FOR UNKNOWN INDICATION
     Route: 058

REACTIONS (6)
  - Diabetic ketoacidosis [Unknown]
  - Kidney infection [Unknown]
  - Cystitis [Unknown]
  - Blindness unilateral [Not Recovered/Not Resolved]
  - Blood glucose decreased [Unknown]
  - Underdose [Unknown]
